FAERS Safety Report 7548351-6 (Version None)
Quarter: 2011Q2

REPORT INFORMATION
  Report Type: 
  Country: None (occurrence: None)
  Receive Date: 20110608
  Receipt Date: 20110525
  Transmission Date: 20111010
  Serious: Yes (Other)
  Sender: FDA-Public Use
  Company Number: 2011MA006612

PATIENT
  Age: 32 Year
  Sex: Male

DRUGS (1)
  1. CITALOPRAM HYDROBROMIDE [Suspect]
     Dosage: 10 MG;QD;PO
     Route: 048
     Dates: start: 20110201, end: 20110501

REACTIONS (2)
  - STRABISMUS [None]
  - WITHDRAWAL SYNDROME [None]
